FAERS Safety Report 19922875 (Version 1)
Quarter: 2021Q4

REPORT INFORMATION
  Report Type: Spontaneous
  Country: US (occurrence: US)
  Receive Date: 20211005
  Receipt Date: 20211005
  Transmission Date: 20220303
  Serious: Yes (Other)
  Sender: FDA-Public Use
  Company Number: None

PATIENT
  Age: 34 Year
  Sex: Female
  Weight: 87.3 kg

DRUGS (6)
  1. ARTNATURALS HAND SANITIZER [Suspect]
     Active Substance: ALCOHOL
     Indication: COVID-19
     Route: 061
     Dates: start: 20200324, end: 20211005
  2. LEVALBUTEROL [Concomitant]
     Active Substance: LEVALBUTEROL
  3. MONTELUKAST [Concomitant]
     Active Substance: MONTELUKAST SODIUM
  4. TUMERIC PILLS [Concomitant]
  5. CALCIUM [Concomitant]
     Active Substance: CALCIUM
  6. MAGNESIUM ZINC [Concomitant]

REACTIONS (5)
  - Skin irritation [None]
  - Dry skin [None]
  - Rash [None]
  - Skin discolouration [None]
  - Application site rash [None]

NARRATIVE: CASE EVENT DATE: 20210801
